FAERS Safety Report 6241253-7 (Version None)
Quarter: 2009Q2

REPORT INFORMATION
  Report Type: 
  Country: None (occurrence: None)
  Receive Date: 20090623
  Receipt Date: 20090611
  Transmission Date: 20091009
  Serious: Yes (Hospitalization)
  Sender: FDA-Public Use
  Company Number: FR-MERCK-0906FRA00045

PATIENT
  Age: 81 Year
  Sex: Female

DRUGS (3)
  1. COZAAR [Suspect]
     Indication: HYPERTENSION
     Route: 048
     Dates: end: 20090207
  2. BISOPROLOL FUMARATE AND HYDROCHLOROTHIAZIDE [Suspect]
     Indication: HYPERTENSION
     Route: 048
     Dates: end: 20090207
  3. METFORMIN [Suspect]
     Indication: TYPE 2 DIABETES MELLITUS
     Route: 048
     Dates: end: 20090207

REACTIONS (4)
  - HYPERKALAEMIA [None]
  - LACTIC ACIDOSIS [None]
  - OVERDOSE [None]
  - RENAL FAILURE ACUTE [None]
